FAERS Safety Report 8965717 (Version 1)
Quarter: 2012Q4

REPORT INFORMATION
  Report Type: Spontaneous
  Country: US (occurrence: None)
  Receive Date: 20121206
  Receipt Date: 20121206
  Transmission Date: 20130627
  Serious: Yes (Hospitalization)
  Sender: FDA-Public Use
  Company Number: 001422023

PATIENT
  Age: 44 Year
  Sex: Female

DRUGS (2)
  1. MEANINGFUL BEAUTY CINDY CRAWFORD ANTIOXIDANT SPF 20 UVA/UVB [Suspect]
     Dates: start: 20111228, end: 201207
  2. UNDISCLOSED HOLISTIC MEDICATIONS [Concomitant]

REACTIONS (2)
  - VIIth nerve paralysis [None]
  - Feeling abnormal [None]
